FAERS Safety Report 24281975 (Version 1)
Quarter: 2024Q3

REPORT INFORMATION
  Report Type: Spontaneous
  Country: GB (occurrence: GB)
  Receive Date: 20240904
  Receipt Date: 20240904
  Transmission Date: 20241017
  Serious: Yes (Hospitalization, Other)
  Sender: TEVA
  Company Number: None

PATIENT
  Sex: Female
  Weight: 45 kg

DRUGS (2)
  1. FAMOTIDINE [Suspect]
     Active Substance: FAMOTIDINE
     Indication: Dyspepsia
     Dosage: 20MG
     Route: 065
     Dates: start: 20240822
  2. MEBEVERINE [Concomitant]
     Active Substance: MEBEVERINE
     Indication: Dyspepsia
     Dates: start: 20240801

REACTIONS (7)
  - Agitation [Not Recovered/Not Resolved]
  - Medication error [Unknown]
  - Dyspnoea [Recovering/Resolving]
  - Back pain [Recovered/Resolved]
  - Chest discomfort [Recovering/Resolving]
  - Paraesthesia [Recovering/Resolving]
  - Muscle spasms [Not Recovered/Not Resolved]

NARRATIVE: CASE EVENT DATE: 20240822
